FAERS Safety Report 9122040 (Version 1)
Quarter: 2013Q1

REPORT INFORMATION
  Report Type: Spontaneous
  Country: US (occurrence: US)
  Receive Date: 20130114
  Receipt Date: 20130114
  Transmission Date: 20140127
  Serious: Yes (Death, Hospitalization)
  Sender: FDA-Public Use
  Company Number: US-COVIDIEN/TYCO HEALTHCARE/MALLINCKRODT-T201300019

PATIENT
  Age: 64 None
  Sex: Male
  Weight: 54.42 kg

DRUGS (23)
  1. METHADOSE [Suspect]
     Indication: DRUG DEPENDENCE
     Dosage: 25 MG, QD
     Route: 048
  2. METHADOSE [Suspect]
     Dosage: 28 MG, QD
  3. METHADOSE [Suspect]
     Dosage: 23 MG, QD
  4. METHADOSE [Suspect]
     Dosage: 24 MG, QD
  5. METHADOSE [Suspect]
  6. METHADOSE [Suspect]
     Dosage: 20 MG, QD
  7. GEMFIBROZIL [Concomitant]
     Indication: GASTROINTESTINAL DISORDER
     Dosage: 600 MG, UNK
  8. OYST-CAL [Concomitant]
     Dosage: 500 MG, UNK
  9. HYDROCODONE W/APAP                 /01554201/ [Concomitant]
     Indication: PAIN
     Dosage: 7.5/750 MG
  10. HYDROCODONE W/APAP                 /01554201/ [Concomitant]
     Dosage: 10/325, 1-2 TAB PO Q 4 HRS, PRN
  11. PREVACID [Concomitant]
     Dosage: 30 MG, UNK
  12. Q-PAP EX-STR [Concomitant]
     Dosage: 500 MG, UNK
  13. MAPAP [Concomitant]
     Indication: PAIN
     Dosage: 500 MG, UNK
  14. FOSAMAX PLUS [Concomitant]
     Dosage: UNK
  15. VICODIN [Concomitant]
     Dosage: 5/500
  16. NEXIUM                             /01479302/ [Concomitant]
     Dosage: 40 MG, UNK
  17. ALBUTEROL                          /00139501/ [Concomitant]
     Dosage: UNK
  18. CIPROFLOXACIN [Concomitant]
     Dosage: 500 MG, UNK
     Dates: start: 2009
  19. FLAGYL /00012501/ [Concomitant]
     Dosage: 500 MG, UNK
     Dates: start: 2009
  20. FENTANYL [Concomitant]
     Dosage: 50 MCG/HR, Q 72 HRS
     Dates: start: 2009
  21. COLACE [Concomitant]
     Dosage: 100 MG, Q HS, PRN
  22. XOPENEX HFA [Concomitant]
     Dosage: 2 PUFFS, QID
  23. TYLENOL PM [Concomitant]
     Dosage: UNK

REACTIONS (21)
  - Death [Fatal]
  - Neoplasm malignant [Unknown]
  - Duodenal perforation [Unknown]
  - Cholecystectomy [Unknown]
  - Abdominal operation [Unknown]
  - Anal sphincterotomy [Unknown]
  - Abdominal pain upper [Unknown]
  - Cough [Unknown]
  - Gastroenteritis viral [Recovering/Resolving]
  - Pain in extremity [Unknown]
  - Chest pain [Unknown]
  - Nasopharyngitis [Unknown]
  - Hypersomnia [Unknown]
  - Aphonia [Unknown]
  - Weight decreased [Unknown]
  - Fatigue [Unknown]
  - Arthralgia [Unknown]
  - Pyrexia [Unknown]
  - Influenza [Unknown]
  - Asthenia [Unknown]
  - Decreased appetite [Unknown]
